FAERS Safety Report 7407503-6 (Version None)
Quarter: 2011Q2

REPORT INFORMATION
  Report Type: 
  Country: None (occurrence: None)
  Receive Date: 20110412
  Receipt Date: 20110331
  Transmission Date: 20111010
  Serious: Yes (Death)
  Sender: FDA-Public Use
  Company Number: US-BIOGENIDEC-2011BI003791

PATIENT
  Age: 47 Year
  Sex: Male

DRUGS (4)
  1. CLONAZEPAM [Concomitant]
     Indication: TREMOR
  2. PROPRANOLOL [Concomitant]
     Indication: HYPERTENSION
  3. BACLOFEN [Concomitant]
     Indication: MUSCULOSKELETAL STIFFNESS
  4. TYSABRI [Suspect]
     Indication: MULTIPLE SCLEROSIS
     Route: 042
     Dates: start: 20071214, end: 20090130

REACTIONS (1)
  - MARBURG'S VARIANT MULTIPLE SCLEROSIS [None]
